FAERS Safety Report 16446290 (Version 3)
Quarter: 2019Q4

REPORT INFORMATION
  Report Type: Spontaneous
  Country: CA (occurrence: CA)
  Receive Date: 20190618
  Receipt Date: 20191227
  Transmission Date: 20200122
  Serious: Yes (Other)
  Sender: FDA-Public Use
  Company Number: CA-SAMSUNG BIOEPIS-SB-2019-15249

PATIENT
  Age: 56 Year
  Sex: Female

DRUGS (30)
  1. ENBREL [Suspect]
     Active Substance: ETANERCEPT
     Indication: RHEUMATOID ARTHRITIS
     Route: 058
  2. HUMIRA [Suspect]
     Active Substance: ADALIMUMAB
     Indication: PRODUCT USED FOR UNKNOWN INDICATION
     Route: 058
  3. HYDROXYCHLOROQUINE SULFATE. [Concomitant]
     Active Substance: HYDROXYCHLOROQUINE SULFATE
     Route: 065
  4. HYDROXYCHLOROQUINE [Concomitant]
     Active Substance: HYDROXYCHLOROQUINE
     Indication: RHEUMATOID ARTHRITIS
     Dosage: UNKNOWN
     Route: 065
  5. CELECOXIB. [Suspect]
     Active Substance: CELECOXIB
     Indication: RHEUMATOID ARTHRITIS
     Dosage: UNKNOWN
     Route: 065
  6. METHOTREXATE. [Suspect]
     Active Substance: METHOTREXATE
     Route: 058
  7. HYDROXYCHLOROQUINE SULFATE. [Concomitant]
     Active Substance: HYDROXYCHLOROQUINE SULFATE
     Indication: RHEUMATOID ARTHRITIS
     Dosage: UNKNOWN
     Route: 065
  8. HYDROXYCHLOROQUINE [Concomitant]
     Active Substance: HYDROXYCHLOROQUINE
     Route: 065
  9. XELJANZ [Concomitant]
     Active Substance: TOFACITINIB CITRATE
     Indication: PRODUCT USED FOR UNKNOWN INDICATION
     Route: 065
  10. ETANERCEPT [Suspect]
     Active Substance: ETANERCEPT
     Indication: RHEUMATOID ARTHRITIS
     Route: 058
  11. INFLIXIMAB [Suspect]
     Active Substance: INFLIXIMAB
     Route: 042
  12. CELEBREX [Suspect]
     Active Substance: CELECOXIB
     Indication: RHEUMATOID ARTHRITIS
     Dosage: UNKNOWN
     Route: 065
  13. INFLIXIMAB [Suspect]
     Active Substance: INFLIXIMAB
     Indication: RHEUMATOID ARTHRITIS
     Route: 042
  14. APO-LEFLUNOMIDE [Suspect]
     Active Substance: LEFLUNOMIDE
     Indication: RHEUMATOID ARTHRITIS
     Dosage: UNKNOWN
     Route: 065
  15. HUMIRA [Suspect]
     Active Substance: ADALIMUMAB
     Route: 058
  16. HUMIRA [Suspect]
     Active Substance: ADALIMUMAB
     Route: 058
  17. PREDNISONE. [Suspect]
     Active Substance: PREDNISONE
     Indication: PRODUCT USED FOR UNKNOWN INDICATION
     Dosage: UNKNOWN
     Route: 065
  18. LEFLUNOMIDE. [Suspect]
     Active Substance: LEFLUNOMIDE
     Route: 048
  19. LEFLUNOMIDE. [Concomitant]
     Active Substance: LEFLUNOMIDE
     Indication: PRODUCT USED FOR UNKNOWN INDICATION
     Dosage: UNKNOWN
     Route: 065
  20. PLAQUENIL [Concomitant]
     Active Substance: HYDROXYCHLOROQUINE SULFATE
     Indication: RHEUMATOID ARTHRITIS
     Dosage: UNKNOWN
     Route: 065
  21. INFLIXIMAB [Suspect]
     Active Substance: INFLIXIMAB
     Route: 042
  22. HUMIRA [Suspect]
     Active Substance: ADALIMUMAB
     Route: 058
  23. SULFASALAZINE. [Suspect]
     Active Substance: SULFASALAZINE
     Indication: RHEUMATOID ARTHRITIS
     Dosage: UNKNOWN
     Route: 065
  24. ENBREL [Suspect]
     Active Substance: ETANERCEPT
     Route: 058
  25. PLAQUENIL [Concomitant]
     Active Substance: HYDROXYCHLOROQUINE SULFATE
     Dosage: UNKNOWN
     Route: 065
  26. PREDNISONE. [Concomitant]
     Active Substance: PREDNISONE
     Indication: PRODUCT USED FOR UNKNOWN INDICATION
     Dosage: UNKNOWN
     Route: 065
  27. METHOTREXATE. [Suspect]
     Active Substance: METHOTREXATE
     Indication: RHEUMATOID ARTHRITIS
     Route: 058
  28. LEFLUNOMIDE. [Suspect]
     Active Substance: LEFLUNOMIDE
     Indication: PRODUCT USED FOR UNKNOWN INDICATION
     Dosage: UNKNOWN
     Route: 065
  29. ENBREL [Suspect]
     Active Substance: ETANERCEPT
     Route: 058
  30. XELJANZ [Concomitant]
     Active Substance: TOFACITINIB CITRATE
     Dosage: UNKNOWN
     Route: 065

REACTIONS (21)
  - Influenza like illness [Recovered/Resolved]
  - Drug ineffective [Recovered/Resolved]
  - Rheumatoid arthritis [Recovered/Resolved]
  - Bone erosion [Recovered/Resolved]
  - Joint swelling [Recovered/Resolved]
  - Drug hypersensitivity [Recovered/Resolved]
  - Gastric disorder [Recovered/Resolved]
  - Gastric haemorrhage [Recovered/Resolved]
  - Hepatic enzyme increased [Recovered/Resolved]
  - Vomiting [Recovered/Resolved]
  - Infusion related reaction [Recovered/Resolved]
  - Substance-induced psychotic disorder [Recovered/Resolved]
  - Malaise [Recovered/Resolved]
  - Drug intolerance [Recovered/Resolved]
  - Headache [Recovered/Resolved]
  - Musculoskeletal disorder [Recovered/Resolved]
  - Nausea [Recovered/Resolved]
  - Rheumatoid nodule [Recovered/Resolved]
  - Product use issue [Recovered/Resolved]
  - Arthralgia [Recovered/Resolved]
  - Urinary tract infection [Recovered/Resolved]
